FAERS Safety Report 18381759 (Version 1)
Quarter: 2020Q4

REPORT INFORMATION
  Report Type: Spontaneous
  Country: DK (occurrence: DK)
  Receive Date: 20201014
  Receipt Date: 20201014
  Transmission Date: 20210114
  Serious: Yes (Hospitalization)
  Sender: FDA-Public Use
  Company Number: DK-ASTRAZENECA-2020SF31306

PATIENT
  Age: 59 Year
  Sex: Male

DRUGS (7)
  1. QUETIAPIN ^ACCORD^ [Concomitant]
     Active Substance: QUETIAPINE
     Indication: MENTAL DISORDER
     Dosage: DOSE: 200MG MORNING. 600MG EVENING.
     Route: 048
     Dates: start: 20140323
  2. GABAPENTIN ^ORIFARM^ [Concomitant]
     Indication: NEURALGIA
     Route: 048
     Dates: start: 20200525
  3. ALENDRONAT [Concomitant]
     Active Substance: ALENDRONATE SODIUM
     Indication: OSTEOPOROSIS
     Route: 048
     Dates: start: 20141121
  4. XIGDUO XR [Suspect]
     Active Substance: DAPAGLIFLOZIN PROPANEDIOL\METFORMIN HYDROCHLORIDE
     Indication: TYPE 2 DIABETES MELLITUS
     Dosage: STRENGTH: 5MG/1000MG, 2 DF DAILY
     Route: 048
     Dates: start: 20160307, end: 20200923
  5. RISPERIDON ^STADA^ [Concomitant]
     Indication: MENTAL DISORDER
     Route: 048
     Dates: start: 20121001
  6. LYSANTIN [Concomitant]
     Active Substance: ORPHENADRINE HYDROCHLORIDE
     Indication: ADVERSE DRUG REACTION
     Route: 048
     Dates: start: 20200609
  7. NITRAZEPAM ^DAK^ [Concomitant]
     Active Substance: NITRAZEPAM
     Indication: INSOMNIA
     Route: 048
     Dates: start: 20200501

REACTIONS (1)
  - Euglycaemic diabetic ketoacidosis [Not Recovered/Not Resolved]

NARRATIVE: CASE EVENT DATE: 20200923
